FAERS Safety Report 7986936-3 (Version None)
Quarter: 2011Q4

REPORT INFORMATION
  Report Type: 
  Country: None (occurrence: None)
  Receive Date: 20111216
  Receipt Date: 20110928
  Transmission Date: 20120403
  Serious: No
  Sender: FDA-Public Use
  Company Number: US-BRISTOL-MYERS SQUIBB COMPANY-16051567

PATIENT
  Age: 58 Year
  Sex: Female

DRUGS (20)
  1. NITROSTAT [Concomitant]
  2. MICRO-K [Concomitant]
  3. FLEXERIL [Concomitant]
  4. BENECOL [Concomitant]
  5. MEVACOR [Concomitant]
  6. BENADRYL [Concomitant]
  7. MIRALAX [Concomitant]
  8. PEPCID [Concomitant]
  9. LIDOCAINE [Concomitant]
     Dosage: PATCHES
  10. ZOFRAN [Concomitant]
  11. VICODIN [Concomitant]
  12. TOPROL-XL [Concomitant]
  13. LEXAPRO [Concomitant]
  14. ABILIFY [Suspect]
     Indication: BIPOLAR DISORDER
     Dosage: DURATION:FOR TWO WEEKS
     Route: 048
     Dates: start: 20110907
  15. AMBIEN CR [Concomitant]
  16. LASIX [Concomitant]
  17. ABILIFY [Suspect]
     Indication: DEPRESSION
     Dosage: DURATION:FOR TWO WEEKS
     Route: 048
     Dates: start: 20110907
  18. ATIVAN [Concomitant]
  19. DEXLANSOPRAZOLE [Concomitant]
  20. PHENERGAN [Concomitant]

REACTIONS (2)
  - POOR QUALITY SLEEP [None]
  - HALLUCINATION, AUDITORY [None]
